FAERS Safety Report 17441692 (Version 1)
Quarter: 2020Q1

REPORT INFORMATION
  Report Type: Spontaneous
  Country: TJ (occurrence: TJ)
  Receive Date: 20200220
  Receipt Date: 20200220
  Transmission Date: 20200409
  Serious: Yes (Other)
  Sender: FDA-Public Use
  Company Number: TJ-PFIZER INC-2020074102

PATIENT
  Age: 9 Year
  Sex: Female
  Weight: 34.14 kg

DRUGS (11)
  1. LINEZOLID. [Suspect]
     Active Substance: LINEZOLID
     Indication: EXTRAPULMONARY TUBERCULOSIS
     Dosage: 600 MG, UNK
     Dates: start: 201912
  2. CLOFAZIMINE [Suspect]
     Active Substance: CLOFAZIMINE
     Indication: EXTRAPULMONARY TUBERCULOSIS
     Dosage: 100 MG, UNK
     Dates: end: 20191213
  3. CYCLOSERINE. [Suspect]
     Active Substance: CYCLOSERINE
     Indication: EXTRAPULMONARY TUBERCULOSIS
     Dosage: 500 MG, UNK
     Dates: start: 201912
  4. DELTYBA [Suspect]
     Active Substance: DELAMANID
     Indication: LYMPH NODE TUBERCULOSIS
     Dosage: 50 MG, 2X/DAY
     Dates: start: 20190528, end: 20191202
  5. CLOFAZIMINE [Suspect]
     Active Substance: CLOFAZIMINE
     Indication: LYMPH NODE TUBERCULOSIS
     Dosage: 100 MG, UNK
     Dates: end: 20191202
  6. LINEZOLID. [Suspect]
     Active Substance: LINEZOLID
     Indication: LYMPH NODE TUBERCULOSIS
     Dosage: 600 MG, UNK
     Dates: end: 20191202
  7. DELTYBA [Suspect]
     Active Substance: DELAMANID
     Indication: EXTRAPULMONARY TUBERCULOSIS
     Dosage: 50 MG, 2X/DAY
     Dates: start: 201912
  8. CLOFAZIMINE [Suspect]
     Active Substance: CLOFAZIMINE
     Dosage: 100 MG, UNK
     Dates: start: 201912
  9. CYCLOSERINE. [Suspect]
     Active Substance: CYCLOSERINE
     Indication: LYMPH NODE TUBERCULOSIS
     Dosage: 500 MG, UNK
     Dates: end: 20191202
  10. LEVOFLOXACIN HEMIHYDRATE [Suspect]
     Active Substance: LEVOFLOXACIN
     Indication: EXTRAPULMONARY TUBERCULOSIS
     Dosage: 750 MG, UNK
     Dates: start: 201912
  11. LEVOFLOXACIN HEMIHYDRATE [Suspect]
     Active Substance: LEVOFLOXACIN
     Indication: LYMPH NODE TUBERCULOSIS
     Dosage: 750 MG, UNK
     Dates: end: 20191202

REACTIONS (8)
  - Electrocardiogram abnormal [Unknown]
  - Nausea [Recovering/Resolving]
  - Angina pectoris [Recovered/Resolved]
  - Off label use [Unknown]
  - Product use in unapproved indication [Unknown]
  - Product use issue [Unknown]
  - Dermatitis allergic [Recovered/Resolved]
  - Blood urea increased [Unknown]

NARRATIVE: CASE EVENT DATE: 20191201
